FAERS Safety Report 23947843 (Version 2)
Quarter: 2025Q2

REPORT INFORMATION
  Report Type: Report from Study
  Country: GB (occurrence: GB)
  Receive Date: 20240606
  Receipt Date: 20250513
  Transmission Date: 20250717
  Serious: Yes (Other)
  Sender: ABBVIE
  Company Number: GB-ABBVIE-5786693

PATIENT
  Age: 62 Year
  Sex: Female

DRUGS (1)
  1. SKYRIZI [Suspect]
     Active Substance: RISANKIZUMAB-RZAA
     Indication: Psoriasis
     Route: 058

REACTIONS (5)
  - Retinal detachment [Recovered/Resolved]
  - Inappropriate schedule of product administration [Unknown]
  - Uveitis [Unknown]
  - Swelling [Unknown]
  - Retinal detachment [Unknown]

NARRATIVE: CASE EVENT DATE: 20240528
